FAERS Safety Report 8722303 (Version 2)
Quarter: 2013Q4

REPORT INFORMATION
  Report Type: Spontaneous
  Country: US (occurrence: US)
  Receive Date: 20120814
  Receipt Date: 20131101
  Transmission Date: 20140711
  Serious: No
  Sender: FDA-Public Use
  Company Number: US-009507513-1205USA04454

PATIENT
  Age: 67 Year
  Sex: Female
  Weight: 85.26 kg

DRUGS (13)
  1. JANUVIA [Suspect]
     Indication: TYPE 2 DIABETES MELLITUS
     Dosage: 100 MG, QD
     Route: 048
     Dates: start: 20120509, end: 20120518
  2. ALLEGRA [Concomitant]
     Dosage: 1 DF, QD
     Route: 048
     Dates: start: 20110816
  3. METFORMIN [Concomitant]
     Dosage: 1 DF, BID
     Dates: start: 20110621
  4. SIMVASTATIN [Concomitant]
     Dosage: 1 DF, HS
     Route: 048
     Dates: start: 20110512
  5. ERGOCALCIFEROL [Concomitant]
     Dosage: 50000 UNITS, BIW
     Route: 048
     Dates: start: 20110121
  6. KETOTIFEN FUMARATE [Concomitant]
     Dosage: UNK
     Dates: start: 20110120
  7. DICLOFENAC SODIUM [Concomitant]
     Dosage: 1 DF, BID
     Route: 048
     Dates: start: 20101221
  8. AMARYL [Concomitant]
     Dosage: 1 DF, QD
     Route: 048
  9. SYNTHROID [Concomitant]
     Dosage: 1 DF, QD
     Route: 048
  10. ZESTORETIC [Concomitant]
     Dosage: 10-12.5 MG, QD
     Route: 048
  11. OMEGA-3 MARINE TRIGLYCERIDES [Concomitant]
     Dosage: 1 DF, TID
     Route: 048
  12. FLONASE [Concomitant]
     Dosage: 2 SPRAYS IN EACH NOSTRIL, QD
     Route: 055
     Dates: start: 20120508
  13. OMEPRAZOLE [Concomitant]
     Dosage: 1 DF, QD
     Route: 048
     Dates: start: 20120508

REACTIONS (3)
  - Rash [Recovered/Resolved]
  - Erythema [Recovered/Resolved]
  - Urticaria [Recovered/Resolved]
